FAERS Safety Report 10255526 (Version 2)
Quarter: 2014Q3

REPORT INFORMATION
  Report Type: Spontaneous
  Country: US (occurrence: MX)
  Receive Date: 20140624
  Receipt Date: 20140723
  Transmission Date: 20150326
  Serious: Yes (Other)
  Sender: FDA-Public Use
  Company Number: US-WATSON-2014-12934

PATIENT
  Age: 57 Year
  Sex: Female
  Weight: 65 kg

DRUGS (8)
  1. ENALAPRIL [Concomitant]
     Active Substance: ENALAPRIL
     Indication: PRODUCT USED FOR UNKNOWN INDICATION
     Dosage: UNK, UNKNOWN
     Route: 065
     Dates: start: 201306
  2. OMEPRAZOLE. [Concomitant]
     Active Substance: OMEPRAZOLE
     Indication: PRODUCT USED FOR UNKNOWN INDICATION
     Dosage: 20 MG, UNKNOWN
     Route: 065
     Dates: start: 20130111
  3. FOLIC ACID. [Concomitant]
     Active Substance: FOLIC ACID
     Indication: PRODUCT USED FOR UNKNOWN INDICATION
     Dosage: UNK, UNKNOWN
     Route: 065
     Dates: start: 200803
  4. METHOTREXATE [Concomitant]
     Active Substance: METHOTREXATE
     Indication: PRODUCT USED FOR UNKNOWN INDICATION
     Dosage: UNK, UNKNOWN
     Route: 065
     Dates: start: 20130111, end: 20140522
  5. DEXAMETHASONE ACETATE (WATSON LABORATORIES) [Suspect]
     Active Substance: DEXAMETHASONE ACETATE
     Indication: MUSCLE INJURY
     Dosage: 8 MG, TOTAL
     Route: 030
     Dates: start: 20140517, end: 20140517
  6. DEXAMETHASONE ACETATE (WATSON LABORATORIES) [Suspect]
     Active Substance: DEXAMETHASONE ACETATE
     Dosage: 8 MG, TOTAL
     Route: 030
     Dates: start: 20140518, end: 20140518
  7. PARACETAMOL [Concomitant]
     Active Substance: ACETAMINOPHEN
     Indication: PRODUCT USED FOR UNKNOWN INDICATION
     Dosage: UNK, UNKNOWN
     Route: 065
     Dates: start: 20120615, end: 20140522
  8. PREDNISONE. [Concomitant]
     Active Substance: PREDNISONE
     Indication: PRODUCT USED FOR UNKNOWN INDICATION
     Dosage: UNK, UNKNOWN
     Route: 065
     Dates: start: 200803, end: 20140522

REACTIONS (3)
  - Blood creatine phosphokinase increased [Recovered/Resolved]
  - Liver function test abnormal [Recovered/Resolved]
  - Muscle injury [Recovered/Resolved]

NARRATIVE: CASE EVENT DATE: 20140518
